FAERS Safety Report 25449449 (Version 2)
Quarter: 2025Q4

REPORT INFORMATION
  Report Type: Report from Study
  Country: US (occurrence: US)
  Receive Date: 20250618
  Receipt Date: 20251010
  Transmission Date: 20260118
  Serious: Yes (Hospitalization)
  Sender: JAZZ
  Company Number: US-JAZZ PHARMACEUTICALS-2025-US-014845

PATIENT
  Sex: Male

DRUGS (2)
  1. EPIDIOLEX [Suspect]
     Active Substance: CANNABIDIOL
     Indication: Severe myoclonic epilepsy of infancy
     Dosage: 25 MILLIGRAM/KILOGRAM/DAY (TWICE PER DAY)
  2. EPIDIOLEX [Suspect]
     Active Substance: CANNABIDIOL
     Dosage: 23 MILLIGRAM/KILOGRAM/DAY (TWICE PER DAY)

REACTIONS (4)
  - Illness [Recovered/Resolved]
  - Myoclonic epilepsy [Not Recovered/Not Resolved]
  - Atonic seizures [Not Recovered/Not Resolved]
  - Therapeutic product effect decreased [Unknown]
